FAERS Safety Report 4627803-2 (Version None)
Quarter: 2005Q2

REPORT INFORMATION
  Report Type: 
  Country: None (occurrence: None)
  Receive Date: 20050401
  Receipt Date: 20050323
  Transmission Date: 20051028
  Serious: Yes (Other)
  Sender: FDA-Public Use
  Company Number: 2005013160

PATIENT
  Age: 66 Year
  Sex: Male

DRUGS (5)
  1. CARDENALIN (DOXAZOSIN) [Suspect]
     Indication: HYPERTENSION
     Dosage: SEE IMAGE
     Route: 048
     Dates: start: 20041220, end: 20050113
  2. CARDENALIN (DOXAZOSIN) [Suspect]
     Indication: HYPERTENSION
     Dosage: SEE IMAGE
     Route: 048
     Dates: start: 20050106, end: 20050113
  3. AMLODIPINE BESYLATE [Concomitant]
  4. LOSARTAN POTASSIUM [Concomitant]
  5. BUFFERIN [Concomitant]

REACTIONS (2)
  - ASPARTATE AMINOTRANSFERASE INCREASED [None]
  - BLOOD CREATINE PHOSPHOKINASE INCREASED [None]
